FAERS Safety Report 24357176 (Version 1)
Quarter: 2024Q3

REPORT INFORMATION
  Report Type: Report from Study
  Country: US (occurrence: US)
  Receive Date: 20240924
  Receipt Date: 20240924
  Transmission Date: 20241017
  Serious: Yes (Other)
  Sender: BAUSCH AND LOMB
  Company Number: US-BAUSCH-BL-2024-014182

PATIENT
  Age: 60 Year
  Sex: Female

DRUGS (1)
  1. SILIQ [Suspect]
     Active Substance: BRODALUMAB
     Indication: Psoriasis
     Dosage: 210 MG/1.5ML, INJECT 210MG SUBCUTANEOUSLY AT WEEKS 0,1, AND 2 AS DIRECTED
     Route: 058
     Dates: start: 202306

REACTIONS (1)
  - Surgery [Unknown]
